FAERS Safety Report 11997385 (Version 2)
Quarter: 2016Q1

REPORT INFORMATION
  Report Type: Report from Study
  Country: ZA (occurrence: ZW)
  Receive Date: 20160203
  Receipt Date: 20160223
  Transmission Date: 20160526
  Serious: Yes (Death, Other)
  Sender: FDA-Public Use
  Company Number: ZA-AMGEN-ZWESL2016010462

PATIENT
  Age: 59 Year
  Sex: Female

DRUGS (1)
  1. ARANESP [Suspect]
     Active Substance: DARBEPOETIN ALFA
     Indication: NEPHROGENIC ANAEMIA
     Dosage: 60 MCG, QWK
     Route: 058
     Dates: start: 20150828

REACTIONS (2)
  - Haemodialysis [Unknown]
  - Death [Fatal]

NARRATIVE: CASE EVENT DATE: 201512
